FAERS Safety Report 19584474 (Version 1)
Quarter: 2021Q3

REPORT INFORMATION
  Report Type: Spontaneous
  Country: US (occurrence: US)
  Receive Date: 20210720
  Receipt Date: 20210720
  Transmission Date: 20211014
  Serious: Yes (Other)
  Sender: FDA-Public Use
  Company Number: NVSC2021US159169

PATIENT

DRUGS (1)
  1. HALOPERIDOL. [Suspect]
     Active Substance: HALOPERIDOL
     Indication: INTENSIVE CARE UNIT DELIRIUM
     Dosage: 0.01?0.03 MG/KG, QD, WITH A MAXIMUM OF 5 MG PER DOSE
     Route: 065

REACTIONS (2)
  - Product use in unapproved indication [Unknown]
  - Dystonia [Unknown]
